FAERS Safety Report 21892324 (Version 1)
Quarter: 2023Q1

REPORT INFORMATION
  Report Type: Spontaneous
  Country: US (occurrence: US)
  Receive Date: 20230120
  Receipt Date: 20230120
  Transmission Date: 20230417
  Serious: No
  Sender: FDA-Public Use
  Company Number: US-JAZZ-2022-US-037247

PATIENT
  Age: 36 Year
  Sex: Female

DRUGS (1)
  1. XYREM [Suspect]
     Active Substance: SODIUM OXYBATE
     Indication: Narcolepsy

REACTIONS (4)
  - Confusional state [Unknown]
  - Injury [Unknown]
  - Feeling abnormal [Unknown]
  - Product dose omission issue [Unknown]
